FAERS Safety Report 5317378-7 (Version None)
Quarter: 2007Q2

REPORT INFORMATION
  Report Type: 
  Country: None (occurrence: None)
  Receive Date: 20070504
  Receipt Date: 20070501
  Transmission Date: 20071010
  Serious: Yes (Hospitalization)
  Sender: FDA-Public Use
  Company Number: US-MERCK-0705USA00366

PATIENT
  Age: 71 Year
  Sex: Female

DRUGS (3)
  1. FOSAMAX [Suspect]
     Indication: OSTEOPOROSIS
     Route: 048
     Dates: start: 20020101, end: 20060801
  2. PREVACID [Concomitant]
     Route: 065
  3. DIURETIC (UNSPECIFIED) [Concomitant]
     Route: 065

REACTIONS (3)
  - CHEST PAIN [None]
  - DYSPNOEA [None]
  - PAIN IN EXTREMITY [None]
